FAERS Safety Report 5485506-9 (Version None)
Quarter: 2007Q4

REPORT INFORMATION
  Report Type: 
  Country: None (occurrence: None)
  Receive Date: 20071010
  Receipt Date: 20071010
  Transmission Date: 20080405
  Serious: Yes (Life-Threatening)
  Sender: FDA-Public Use
  Company Number: None

PATIENT
  Age: 55 Year
  Sex: Female
  Weight: 63.5036 kg

DRUGS (1)
  1. CARVEDILOL [Suspect]
     Indication: CARDIAC FAILURE CONGESTIVE
     Dosage: 2 TABLETS 2 X DAY PO
     Route: 048
     Dates: start: 20071002, end: 20071008

REACTIONS (3)
  - FLUID RETENTION [None]
  - INSOMNIA [None]
  - PALPITATIONS [None]
